FAERS Safety Report 14619216 (Version 1)
Quarter: 2018Q1

REPORT INFORMATION
  Report Type: Spontaneous
  Country: GB (occurrence: GB)
  Receive Date: 20180309
  Receipt Date: 20180309
  Transmission Date: 20180509
  Serious: Yes (Other)
  Sender: FDA-Public Use
  Company Number: GB-AUROBINDO-AUR-APL-2018-012150

PATIENT
  Sex: Female

DRUGS (1)
  1. METRONIDAZOLE. [Suspect]
     Active Substance: METRONIDAZOLE
     Indication: ALVEOLAR OSTEITIS
     Dosage: 400 MILLIGRAM
     Route: 048

REACTIONS (6)
  - Hallucination, auditory [Unknown]
  - Nausea [Unknown]
  - Faeces pale [Unknown]
  - Oropharyngeal pain [Unknown]
  - Urticaria [Unknown]
  - Chromaturia [Unknown]
